FAERS Safety Report 13693491 (Version 2)
Quarter: 2017Q2

REPORT INFORMATION
  Report Type: Report from Study
  Country: None (occurrence: BR)
  Receive Date: 20170627
  Receipt Date: 20170629
  Transmission Date: 20170830
  Serious: Yes (Other)
  Sender: FDA-Public Use
  Company Number: BR-ABBVIE-17K-020-2016718-00

PATIENT
  Sex: Female
  Weight: 70 kg

DRUGS (2)
  1. METHOTREXATE. [Concomitant]
     Active Substance: METHOTREXATE
     Indication: PAIN
     Route: 048
  2. HUMIRA [Suspect]
     Active Substance: ADALIMUMAB
     Indication: PSORIATIC ARTHROPATHY
     Route: 058
     Dates: start: 20120907

REACTIONS (10)
  - Osteoarthritis [Recovering/Resolving]
  - Post procedural complication [Unknown]
  - Endodontic procedure [Recovered/Resolved]
  - Osteoarthritis [Not Recovered/Not Resolved]
  - Fall [Unknown]
  - Osteoarthritis [Not Recovered/Not Resolved]
  - Pain [Not Recovered/Not Resolved]
  - Hip fracture [Recovering/Resolving]
  - Gingival hypertrophy [Recovered/Resolved]
  - Osteoarthritis [Not Recovered/Not Resolved]

NARRATIVE: CASE EVENT DATE: 2012
